FAERS Safety Report 18591063 (Version 2)
Quarter: 2021Q1

REPORT INFORMATION
  Report Type: Spontaneous
  Country: FR (occurrence: FR)
  Receive Date: 20201208
  Receipt Date: 20210212
  Transmission Date: 20210419
  Serious: No
  Sender: FDA-Public Use
  Company Number: FR-CELGENEUS-FRA-20201200026

PATIENT
  Age: 71 Year
  Sex: Male

DRUGS (1)
  1. INREBIC [Suspect]
     Active Substance: FEDRATINIB HYDROCHLORIDE
     Indication: PRODUCT USED FOR UNKNOWN INDICATION
     Dosage: 400 MILLIGRAM
     Route: 048
     Dates: start: 20200218, end: 20201130

REACTIONS (1)
  - Vitamin B1 deficiency [Recovered/Resolved]

NARRATIVE: CASE EVENT DATE: 2020
